FAERS Safety Report 5835292-5 (Version None)
Quarter: 2008Q3

REPORT INFORMATION
  Report Type: 
  Country: None (occurrence: None)
  Receive Date: 20080804
  Receipt Date: 20080723
  Transmission Date: 20090109
  Serious: Yes (Other)
  Sender: FDA-Public Use
  Company Number: B0531475A

PATIENT
  Age: 41 Year
  Sex: Female

DRUGS (5)
  1. CALCIUM CARBONATE TABLET (CALCIUM CARBONATE) [Suspect]
     Indication: ABDOMINAL PAIN
     Dosage: ORAL
     Route: 048
  2. SODIUM BICARBONATE (FORMULATION UNKNOWN) (GENERIC) (SODIUM BICARBONATE [Suspect]
     Indication: ABDOMINAL PAIN
  3. ANALGESIC [Concomitant]
  4. MULTI-VITAMIN [Concomitant]
  5. ETHANOL [Concomitant]

REACTIONS (17)
  - ALCOHOL USE [None]
  - BLOOD MAGNESIUM DECREASED [None]
  - BLOOD PHOSPHORUS DECREASED [None]
  - BLOOD POTASSIUM DECREASED [None]
  - BLOOD PRESSURE INCREASED [None]
  - DISORIENTATION [None]
  - DRY MOUTH [None]
  - HYPERCALCAEMIA [None]
  - HYPOCHLORAEMIA [None]
  - METABOLIC ACIDOSIS [None]
  - MILK-ALKALI SYNDROME [None]
  - MUCOSAL DRYNESS [None]
  - PAIN [None]
  - PANCREATITIS ACUTE [None]
  - SKIN TURGOR DECREASED [None]
  - TACHYCARDIA [None]
  - VOMITING [None]
